FAERS Safety Report 8850533 (Version 3)
Quarter: 2013Q3

REPORT INFORMATION
  Report Type: Spontaneous
  Country: US (occurrence: US)
  Receive Date: 20121019
  Receipt Date: 20130718
  Transmission Date: 20140515
  Serious: Yes (Other)
  Sender: FDA-Public Use
  Company Number: CHPA2012US021306

PATIENT
  Age: 59 Year
  Sex: Female

DRUGS (1)
  1. EXCEDRIN EXTRA STRENGTH [Suspect]
     Indication: DYSMENORRHOEA
     Dosage: UNK, PRN
     Route: 048
     Dates: end: 201209

REACTIONS (4)
  - Spinal cord compression [Recovered/Resolved]
  - Arthritis [Recovered/Resolved]
  - Procedural pain [Not Recovered/Not Resolved]
  - Therapeutic response unexpected [Unknown]
